FAERS Safety Report 7338711-0 (Version None)
Quarter: 2011Q1

REPORT INFORMATION
  Report Type: 
  Country: None (occurrence: None)
  Receive Date: 20110308
  Receipt Date: 20110307
  Transmission Date: 20110831
  Serious: Yes (Life-Threatening)
  Sender: FDA-Public Use
  Company Number: B0686916A

PATIENT
  Age: 77 Year
  Sex: Male

DRUGS (7)
  1. PREVISCAN [Concomitant]
     Route: 065
  2. CAPTOPRIL [Concomitant]
     Route: 065
  3. ZANTAC [Suspect]
     Indication: PREMEDICATION
     Dosage: 50MG SINGLE DOSE
     Route: 042
     Dates: start: 20101116, end: 20101116
  4. KYTRIL [Suspect]
     Indication: PREMEDICATION
     Dosage: 3MG PER DAY
     Route: 042
     Dates: start: 20101116, end: 20101116
  5. CHEMOTHERAPY [Concomitant]
  6. SOLU-MEDROL [Suspect]
     Indication: PREMEDICATION
     Dosage: 80MG PER DAY
     Route: 042
     Dates: start: 20101116, end: 20101116
  7. SOTALOL HYDROCHLORIDE [Concomitant]
     Dosage: .5UNIT TWICE PER DAY

REACTIONS (7)
  - ALLERGY TEST POSITIVE [None]
  - SHOCK [None]
  - HYPOVENTILATION [None]
  - HYPOTENSION [None]
  - ATRIAL FIBRILLATION [None]
  - CARDIO-RESPIRATORY ARREST [None]
  - CONVULSION [None]
